FAERS Safety Report 4709353-8 (Version None)
Quarter: 2005Q3

REPORT INFORMATION
  Report Type: 
  Country: None (occurrence: None)
  Receive Date: 20050708
  Receipt Date: 20050315
  Transmission Date: 20060218
  Serious: Yes (Death, Life-Threatening, Hospitalization, Other)
  Sender: FDA-Public Use
  Company Number: PHFR2005GB01231

PATIENT
  Age: 75 Year
  Sex: Female
  Weight: 65 kg

DRUGS (16)
  1. DIOVAN [Suspect]
     Dosage: 160 MG, QD
     Route: 048
  2. DIOVAN [Suspect]
     Dosage: 160 MG, BID
     Route: 048
  3. DIOVAN [Suspect]
     Dosage: 160 MG, QD
     Route: 048
     Dates: start: 20050309, end: 20050310
  4. VANCOMYCIN [Suspect]
     Indication: CELLULITIS
     Dosage: 1 G, BID
     Route: 042
     Dates: start: 20050304, end: 20050306
  5. DIGOXIN [Concomitant]
     Indication: ATRIAL FIBRILLATION
     Dosage: 62.5 UG/DAY
     Route: 048
     Dates: start: 20050301
  6. PRAVASTATIN [Concomitant]
     Indication: HYPERCHOLESTEROLAEMIA
     Dosage: 40 MG ON
     Route: 048
     Dates: start: 20050301
  7. ACETAMINOPHEN W/ CODEINE [Concomitant]
     Indication: PAIN
     Dosage: UNK, QID
     Route: 048
  8. PREDNISOLONE [Concomitant]
     Indication: RHEUMATOID ARTHRITIS
     Dosage: 5 MG OM
     Route: 048
  9. FLUCLOXACILLIN [Concomitant]
     Indication: CELLULITIS
     Dosage: 500 MG, QID
     Route: 042
     Dates: start: 20050301, end: 20050309
  10. ALENDRONATE SODIUM [Concomitant]
     Indication: OSTEOPOROSIS
     Dosage: 70 MG, QW
  11. FOLIC ACID [Concomitant]
     Dosage: 5 MG OM
     Route: 048
  12. WARFARIN [Concomitant]
     Indication: ATRIAL FIBRILLATION
     Dosage: 200MG/DAY
     Route: 048
  13. HYDROXYCHLOROQUINE SULFATE [Concomitant]
     Indication: RHEUMATOID ARTHRITIS
     Dosage: 200 MG, BID
     Dates: end: 20050308
  14. FRUSEMIDE [Concomitant]
     Indication: CARDIAC FAILURE CONGESTIVE
     Dosage: 80 MG, QD
  15. FRUSEMIDE [Concomitant]
     Dosage: 160 MG/DAY
     Dates: start: 20050301
  16. METHOTREXATE [Suspect]
     Indication: RHEUMATOID ARTHRITIS
     Dosage: 25 MG, QW
     Route: 048
     Dates: end: 20050308

REACTIONS (7)
  - BLOOD CREATININE INCREASED [None]
  - CELLULITIS [None]
  - DRUG LEVEL INCREASED [None]
  - DYSPNOEA EXACERBATED [None]
  - NEUTROPENIA [None]
  - STAPHYLOCOCCAL SEPSIS [None]
  - THROMBOCYTOPENIA [None]
